FAERS Safety Report 10098945 (Version 3)
Quarter: 2014Q3

REPORT INFORMATION
  Report Type: Spontaneous
  Country: US (occurrence: US)
  Receive Date: 20140423
  Receipt Date: 20140812
  Transmission Date: 20150326
  Serious: Yes (Hospitalization, Other)
  Sender: FDA-Public Use
  Company Number: US-BAYER-2014-058208

PATIENT
  Age: 43 Year
  Sex: Female
  Weight: 98.87 kg

DRUGS (5)
  1. METOPROLOL [Concomitant]
     Active Substance: METOPROLOL
     Indication: HYPERTENSION
     Dosage: 37.5 MG,DAILY
     Route: 048
     Dates: start: 200509
  2. DEXAMETHASON [DEXAMETHASONE] [Concomitant]
     Indication: ADRENOGENITAL SYNDROME
     Dosage: 0.25 MG,DAILY
     Route: 048
     Dates: start: 200902
  3. OMEPRAZOLE. [Concomitant]
     Active Substance: OMEPRAZOLE
     Indication: GASTROOESOPHAGEAL REFLUX DISEASE
     Dosage: 40 MG,DAILY
  4. SPIRONOLACTONE. [Concomitant]
     Active Substance: SPIRONOLACTONE
     Dosage: UNK
     Route: 048
     Dates: start: 20090421
  5. OCELLA [Suspect]
     Active Substance: DROSPIRENONE\ETHINYL ESTRADIOL
     Dosage: UNK
     Dates: start: 200902, end: 20090515

REACTIONS (13)
  - Gallbladder disorder [None]
  - Cholelithiasis [None]
  - Hypoaesthesia [None]
  - Pulmonary embolism [Recovering/Resolving]
  - Anxiety [None]
  - Venous valve ruptured [None]
  - Subcutaneous haematoma [None]
  - Deep vein thrombosis [None]
  - Thrombosis [None]
  - Depression [None]
  - Pain [Recovering/Resolving]
  - Emotional distress [None]
  - Pain [None]

NARRATIVE: CASE EVENT DATE: 2009
